FAERS Safety Report 8336463-9 (Version None)
Quarter: 2012Q2

REPORT INFORMATION
  Report Type: 
  Country: None (occurrence: None)
  Receive Date: 20120504
  Receipt Date: 20120425
  Transmission Date: 20120825
  Serious: Yes (Other)
  Sender: FDA-Public Use
  Company Number: GB-PFIZER INC-2012106529

PATIENT
  Age: 61 Year
  Sex: Female
  Weight: 95 kg

DRUGS (6)
  1. INDAPAMIDE [Concomitant]
     Dosage: 2.5 MG, UNK
  2. ESOMEPRAZOLE [Concomitant]
     Dosage: UNK
  3. GAVISCON ^SCHERING-PLOUGH^ [Concomitant]
     Dosage: UNK
  4. RANITIDINE [Concomitant]
     Dosage: UNK
  5. ACETAMINOPHEN [Concomitant]
     Dosage: UNK
  6. PANTOPRAZOLE [Suspect]
     Indication: GASTROOESOPHAGEAL REFLUX DISEASE
     Dosage: 1 DF, 2X/DAY
     Route: 048
     Dates: start: 20120402, end: 20120410

REACTIONS (5)
  - ABDOMINAL PAIN [None]
  - DIZZINESS [None]
  - DYSSTASIA [None]
  - VISION BLURRED [None]
  - NAUSEA [None]
